FAERS Safety Report 16510222 (Version 3)
Quarter: 2019Q3

REPORT INFORMATION
  Report Type: Spontaneous
  Country: US (occurrence: US)
  Receive Date: 20190702
  Receipt Date: 20190802
  Transmission Date: 20191004
  Serious: No
  Sender: FDA-Public Use
  Company Number: US-GLAXOSMITHKLINE-US2019AMR115488

PATIENT
  Age: 35 Year
  Sex: Female

DRUGS (2)
  1. NUCALA [Suspect]
     Active Substance: MEPOLIZUMAB
     Indication: EOSINOPHILIC GRANULOMATOSIS WITH POLYANGIITIS
     Dosage: UNK, CYC (THREE 100 MG INJECTIONS Q 28 DAY)
     Route: 058
     Dates: start: 20150203
  2. SYMBICORT [Suspect]
     Active Substance: BUDESONIDE\FORMOTEROL FUMARATE DIHYDRATE
     Indication: PRODUCT USED FOR UNKNOWN INDICATION
     Dosage: UNK
     Route: 065

REACTIONS (11)
  - Ill-defined disorder [Unknown]
  - Fatigue [Unknown]
  - Product dose omission [Unknown]
  - Aphonia [Recovering/Resolving]
  - Cough [Unknown]
  - Malaise [Unknown]
  - Arthritis [Unknown]
  - Gait inability [Recovering/Resolving]
  - Hypersomnia [Unknown]
  - Multiple allergies [Unknown]
  - Dysphonia [Unknown]

NARRATIVE: CASE EVENT DATE: 20190628
